FAERS Safety Report 24761959 (Version 1)
Quarter: 2024Q4

REPORT INFORMATION
  Report Type: Spontaneous
  Country: FR (occurrence: FR)
  Receive Date: 20241221
  Receipt Date: 20241221
  Transmission Date: 20250115
  Serious: Yes (Hospitalization)
  Sender: ABBVIE
  Company Number: None

PATIENT
  Age: 27 Year
  Sex: Female

DRUGS (3)
  1. ESCITALOPRAM [Suspect]
     Active Substance: ESCITALOPRAM OXALATE
     Indication: Intentional overdose
     Dosage: DELIBERATE OVERDOSE: 280 MILLIGRAM TOTAL
     Route: 048
     Dates: start: 20240915, end: 20240915
  2. OXAZEPAM [Suspect]
     Active Substance: OXAZEPAM
     Indication: Intentional overdose
     Dosage: 300 MILLIGRAM
     Route: 048
     Dates: start: 20240915, end: 20240915
  3. ACETAMINOPHEN [Concomitant]
     Active Substance: ACETAMINOPHEN
     Indication: Intentional overdose
     Dosage: 4 GRAM
     Route: 048
     Dates: start: 20240915, end: 20240915

REACTIONS (3)
  - Altered state of consciousness [Recovering/Resolving]
  - Poisoning deliberate [Recovered/Resolved]
  - Intentional overdose [Unknown]

NARRATIVE: CASE EVENT DATE: 20240915
